FAERS Safety Report 4929049-7 (Version None)
Quarter: 2006Q1

REPORT INFORMATION
  Report Type: 
  Country: None (occurrence: None)
  Receive Date: 20060301
  Receipt Date: 20060131
  Transmission Date: 20060701
  Serious: Yes (Other)
  Sender: FDA-Public Use
  Company Number: GB-MERCK-0602GBR00011

PATIENT
  Age: 62 Year
  Sex: Female
  Weight: 77 kg

DRUGS (3)
  1. ZETIA [Suspect]
     Indication: BLOOD CHOLESTEROL INCREASED
     Route: 048
     Dates: start: 20040101, end: 20051227
  2. LEVOTHYROXINE SODIUM [Suspect]
     Indication: THYROXINE DECREASED
     Route: 048
     Dates: start: 19980101
  3. ESTRADIOL [Concomitant]
     Route: 048

REACTIONS (6)
  - ALOPECIA [None]
  - DRUG INTERACTION [None]
  - DRY SKIN [None]
  - DYSPHONIA [None]
  - HYPOTHYROIDISM [None]
  - MYALGIA [None]
